FAERS Safety Report 9640794 (Version 2)
Quarter: 2013Q4

REPORT INFORMATION
  Report Type: Report from Study
  Country: US (occurrence: US)
  Receive Date: 20131023
  Receipt Date: 20131023
  Transmission Date: 20140711
  Serious: No
  Sender: FDA-Public Use
  Company Number: US-ABBVIE-12P-163-1023563-00

PATIENT
  Age: 42 Year
  Sex: Female
  Weight: 62.65 kg

DRUGS (8)
  1. LUPRON DEPOT [Suspect]
     Indication: ENDOMETRIOSIS
     Route: 050
     Dates: start: 201208
  2. LIPITOR [Concomitant]
     Indication: PRODUCT USED FOR UNKNOWN INDICATION
     Route: 048
  3. MULTIVITAMIN [Concomitant]
     Indication: PRODUCT USED FOR UNKNOWN INDICATION
     Dosage: 1 TABLET BY MOUTH DAILY
     Route: 048
  4. NORETHINDRONE ACETATE [Concomitant]
     Indication: PRODUCT USED FOR UNKNOWN INDICATION
     Dosage: BY MOUTH DAILY
     Route: 048
  5. ASA [Concomitant]
     Indication: PRODUCT USED FOR UNKNOWN INDICATION
     Dosage: BY MOUTH DAILY
     Route: 048
  6. CALCIUM [Concomitant]
     Indication: MINERAL SUPPLEMENTATION
     Dosage: BY MOUTH DAILY
     Route: 048
  7. VITAMIN D [Concomitant]
     Indication: PRODUCT USED FOR UNKNOWN INDICATION
     Dosage: BY MOUTH DAILY
     Route: 048
  8. KRILL OIL [Concomitant]
     Indication: PRODUCT USED FOR UNKNOWN INDICATION
     Dosage: BY MOUTH DAILY
     Route: 048

REACTIONS (15)
  - Anger [Not Recovered/Not Resolved]
  - Anxiety [Recovering/Resolving]
  - Insomnia [Unknown]
  - Drug ineffective [Unknown]
  - Thinking abnormal [Unknown]
  - Feeling abnormal [Unknown]
  - Migraine [Unknown]
  - Feeling abnormal [Unknown]
  - Dizziness [Unknown]
  - Feeling abnormal [Unknown]
  - Weight increased [Unknown]
  - Ear disorder [Unknown]
  - Suicidal ideation [Not Recovered/Not Resolved]
  - Amnesia [Not Recovered/Not Resolved]
  - Depression [Not Recovered/Not Resolved]
